FAERS Safety Report 9057329 (Version 1)
Quarter: 2013Q1

REPORT INFORMATION
  Report Type: Spontaneous
  Country: US (occurrence: US)
  Receive Date: 20130131
  Receipt Date: 20130131
  Transmission Date: 20140127
  Serious: Yes (Life-Threatening, Hospitalization, Other)
  Sender: FDA-Public Use
  Company Number: US-PFIZER INC-2013030421

PATIENT
  Age: 68 Year
  Sex: Female

DRUGS (2)
  1. CISPLATIN [Suspect]
     Indication: OVARIAN EPITHELIAL CANCER
     Dosage: 480 MG (280 MG/M2)
  2. CYCLOPHOSPHAMIDE [Concomitant]
     Indication: OVARIAN EPITHELIAL CANCER
     Dosage: 1500 MG, CYCLIC, 2 CYCLES

REACTIONS (12)
  - Wrong drug administered [Recovering/Resolving]
  - Drug name confusion [Unknown]
  - Sepsis [Not Recovered/Not Resolved]
  - Deafness [Not Recovered/Not Resolved]
  - Convulsion [Unknown]
  - Blindness [Unknown]
  - Bone marrow failure [Unknown]
  - Nausea [Recovering/Resolving]
  - Vomiting [Recovering/Resolving]
  - Renal failure [Not Recovered/Not Resolved]
  - Hallucination [Recovered/Resolved]
  - Hepatotoxicity [Recovered/Resolved]
